FAERS Safety Report 5637425-2 (Version None)
Quarter: 2008Q1

REPORT INFORMATION
  Report Type: 
  Country: None (occurrence: None)
  Receive Date: 20080225
  Receipt Date: 20080213
  Transmission Date: 20080703
  Serious: Yes (Life-Threatening, Other)
  Sender: FDA-Public Use
  Company Number: JP-PFIZER INC-2008014184

PATIENT
  Age: 80 Year
  Sex: Female

DRUGS (1)
  1. CABERGOLINE [Suspect]
     Indication: PARKINSON'S DISEASE
     Route: 048
     Dates: start: 20050101, end: 20080101

REACTIONS (3)
  - DYSPNOEA [None]
  - PARKINSON'S DISEASE [None]
  - PLEURAL EFFUSION [None]
